FAERS Safety Report 16453765 (Version 1)
Quarter: 2019Q2

REPORT INFORMATION
  Report Type: Spontaneous
  Country: TH (occurrence: TH)
  Receive Date: 20190619
  Receipt Date: 20190619
  Transmission Date: 20190711
  Serious: Yes (Other)
  Sender: FDA-Public Use
  Company Number: PHHY2019TH138793

PATIENT
  Age: 80 Year
  Sex: Female

DRUGS (5)
  1. RIBOCICLIB. [Suspect]
     Active Substance: RIBOCICLIB
     Dosage: 200 MG, UNK
     Route: 065
  2. RIBOCICLIB. [Suspect]
     Active Substance: RIBOCICLIB
     Indication: BREAST CANCER
     Dosage: 600 MG, UNK
     Route: 065
  3. RIBOCICLIB. [Suspect]
     Active Substance: RIBOCICLIB
     Dosage: 400 MG, UNK
     Route: 065
  4. ANASTROZOLE. [Suspect]
     Active Substance: ANASTROZOLE
     Indication: BREAST CANCER METASTATIC
     Dosage: 1 MG, UNK
     Route: 065
  5. RIBOCICLIB. [Suspect]
     Active Substance: RIBOCICLIB
     Dosage: 200 MG, UNK
     Route: 065

REACTIONS (16)
  - Neutropenia [Unknown]
  - Monocyte percentage increased [Unknown]
  - Haematocrit decreased [Unknown]
  - Mean cell haemoglobin concentration [Unknown]
  - Red cell distribution width increased [Unknown]
  - Mean cell volume decreased [Unknown]
  - Platelet count increased [Recovered/Resolved]
  - Blood urea increased [Unknown]
  - Mean cell haemoglobin decreased [Unknown]
  - Metastases to bone [Unknown]
  - Anaemia [Unknown]
  - Glomerular filtration rate decreased [Unknown]
  - Lymphocyte percentage increased [Unknown]
  - Blood alkaline phosphatase increased [Recovered/Resolved]
  - Blood chloride increased [Unknown]
  - White blood cell count decreased [Unknown]

NARRATIVE: CASE EVENT DATE: 201802
